FAERS Safety Report 9257940 (Version 1)
Quarter: 2013Q1

REPORT INFORMATION
  Report Type: Spontaneous
  Country: US (occurrence: None)
  Receive Date: 20121212
  Receipt Date: 20121212
  Transmission Date: 20140127
  Serious: No
  Sender: FDA-Public Use
  Company Number: 1208USA007252

PATIENT
  Age: 59 Year
  Sex: Male

DRUGS (3)
  1. REBETOL [Suspect]
     Indication: HEPATITIS C
     Dates: start: 20120622
  2. VICTRELIS [Suspect]
     Indication: HEPATITIS C
     Dates: start: 20120721
  3. PEGASYS (PEGINTERFERON ALFA-2A) [Concomitant]

REACTIONS (25)
  - Lip blister [None]
  - Lip pain [None]
  - Chapped lips [None]
  - Anal pruritus [None]
  - Asthenia [None]
  - Depressed mood [None]
  - Depression [None]
  - Back pain [None]
  - Asthenia [None]
  - Red blood cell count decreased [None]
  - Insomnia [None]
  - Dysgeusia [None]
  - Decreased appetite [None]
  - Nausea [None]
  - Eructation [None]
  - Dysgeusia [None]
  - Full blood count decreased [None]
  - Headache [None]
  - Urticaria [None]
  - Diarrhoea [None]
  - Weight decreased [None]
  - Decreased appetite [None]
  - Sleep disorder [None]
  - Emotional disorder [None]
  - Irritability [None]
